FAERS Safety Report 23690351 (Version 4)
Quarter: 2024Q4

REPORT INFORMATION
  Report Type: Spontaneous
  Country: JP (occurrence: JP)
  Receive Date: 20240401
  Receipt Date: 20241226
  Transmission Date: 20250114
  Serious: Yes (Hospitalization, Other)
  Sender: JOHNSON AND JOHNSON
  Company Number: JP-JNJFOC-20240376604

PATIENT
  Age: 54 Year
  Sex: Female

DRUGS (3)
  1. SIMPONI [Suspect]
     Active Substance: GOLIMUMAB
     Indication: Rheumatoid arthritis
     Route: 058
     Dates: start: 20240105, end: 20240206
  2. SIMPONI [Suspect]
     Active Substance: GOLIMUMAB
     Route: 058
     Dates: start: 202404, end: 20241031
  3. METHOTREXATE [Suspect]
     Active Substance: METHOTREXATE
     Indication: Rheumatoid arthritis
     Dosage: DOSE UNKNOWN
     Route: 065

REACTIONS (3)
  - Pulmonary embolism [Recovered/Resolved]
  - Pneumonia [Not Recovered/Not Resolved]
  - Influenza [Not Recovered/Not Resolved]

NARRATIVE: CASE EVENT DATE: 20240301
